FAERS Safety Report 16944898 (Version 1)
Quarter: 2019Q4

REPORT INFORMATION
  Report Type: Other
  Country: DE (occurrence: DE)
  Receive Date: 20191022
  Receipt Date: 20191022
  Transmission Date: 20200122
  Serious: Yes (Hospitalization)
  Sender: FDA-Public Use
  Company Number: DE-MACLEODS PHARMACEUTICALS US LTD-MAC2019023383

PATIENT

DRUGS (7)
  1. COTRIM [Suspect]
     Active Substance: SULFAMETHOXAZOLE\TRIMETHOPRIM
     Indication: CYSTITIS NONINFECTIVE
     Dosage: UNK
     Route: 065
     Dates: start: 201812
  2. LEVOFLOXACIN 500 MG TABLET [Suspect]
     Active Substance: LEVOFLOXACIN
     Indication: BRONCHITIS
     Dosage: 500 MILLIGRAM, QD, A TOTAL OF 7 TABLETS
     Route: 048
     Dates: start: 201811, end: 201811
  3. OFLOX [Suspect]
     Active Substance: OFLOXACIN
     Dosage: UNK, 2 PACKS
     Route: 065
     Dates: start: 201810
  4. CIPROFLOXACIN. [Suspect]
     Active Substance: CIPROFLOXACIN
     Dosage: 1000 MILLIGRAM, QD, A TOTAL OF 14 TABLETS
     Route: 048
     Dates: start: 201311, end: 201311
  5. CEFUROXIME. [Suspect]
     Active Substance: CEFUROXIME
     Indication: CYSTITIS NONINFECTIVE
     Dosage: UNK
     Route: 065
     Dates: start: 201904
  6. OFLOX [Suspect]
     Active Substance: OFLOXACIN
     Indication: CYSTITIS NONINFECTIVE
     Dosage: UNK
     Route: 065
     Dates: start: 201812
  7. CIPROFLOXACIN. [Suspect]
     Active Substance: CIPROFLOXACIN
     Indication: BRONCHITIS
     Dosage: 1000 MILLIGRAM, QD
     Route: 048
     Dates: start: 201902, end: 201902

REACTIONS (12)
  - Illusion [Unknown]
  - Musculoskeletal pain [Unknown]
  - Arthralgia [Unknown]
  - Anxiety [Unknown]
  - Formication [Unknown]
  - Pain in extremity [Unknown]
  - Tendon rupture [Unknown]
  - Muscular weakness [Unknown]
  - Tendon disorder [Unknown]
  - Back pain [Unknown]
  - Presyncope [Unknown]
  - General physical health deterioration [Unknown]

NARRATIVE: CASE EVENT DATE: 2019
